FAERS Safety Report 6933582-6 (Version None)
Quarter: 2010Q3

REPORT INFORMATION
  Report Type: 
  Country: None (occurrence: None)
  Receive Date: 20100820
  Receipt Date: 20100812
  Transmission Date: 20110219
  Serious: Yes (Other)
  Sender: FDA-Public Use
  Company Number: US-JNJFOC-20100703177

PATIENT
  Sex: Female
  Weight: 89.36 kg

DRUGS (5)
  1. REMICADE [Suspect]
     Indication: PSORIATIC ARTHROPATHY
     Dosage: 4 INFUSIONS
     Route: 042
  2. PREDNISONE [Concomitant]
  3. METHOTREXATE [Concomitant]
     Indication: PSORIATIC ARTHROPATHY
  4. CLONOPIN [Concomitant]
  5. MACROBID [Concomitant]
     Indication: URINARY TRACT INFECTION

REACTIONS (3)
  - HYPERHIDROSIS [None]
  - MENISCUS LESION [None]
  - URINARY TRACT INFECTION [None]
